FAERS Safety Report 9358448 (Version 2)
Quarter: 2013Q3

REPORT INFORMATION
  Report Type: Report from Study
  Country: US (occurrence: US)
  Receive Date: 20130620
  Receipt Date: 20130813
  Transmission Date: 20140515
  Serious: Yes (Death)
  Sender: FDA-Public Use
  Company Number: PHEH2013US013292

PATIENT
  Sex: Male
  Weight: 76 kg

DRUGS (16)
  1. TOBI [Suspect]
     Indication: PSEUDOMONAS INFECTION
     Dosage: 1 DF, BID (BY INHALATION ROUTE AT 12 HOURS VIA NEBULIZER)
     Dates: start: 20130322
  2. MULTI-VIT [Concomitant]
     Dosage: 1 DF, (SINGLE DOSE IRON)
     Dates: start: 20130529
  3. OMEPRAZOLE [Concomitant]
     Indication: GASTROOESOPHAGEAL REFLUX DISEASE
     Dosage: 1 DF, BID (BEFORE MEAL)
     Route: 048
     Dates: start: 20130529
  4. SYMBICORT [Concomitant]
     Indication: CHRONIC OBSTRUCTIVE PULMONARY DISEASE
     Dosage: 1 DF, BID (INHALE 2 PUFF TWO TIMES A DAY IN THE MORNING)
     Dates: start: 20130515
  5. PROVENTIL HFA [Concomitant]
     Indication: CHRONIC OBSTRUCTIVE PULMONARY DISEASE
     Dosage: 90 UG, (4 PUFF EVERY 4 HOURS AS NEEDED)
     Dates: start: 20130515
  6. CYCLOBENZAPRINE HCL [Concomitant]
     Indication: MUSCLE SPASMS
     Dosage: 10 MG, (0.5 TO 1 TABLET 5 MG 3 TIMES EVERY DAY)
     Route: 048
     Dates: start: 20130509
  7. ENDOCET [Concomitant]
     Indication: PAIN
     Dosage: 2 DF, TID
     Dates: start: 20130508
  8. FLUDROCORTISONE ACETATE [Concomitant]
     Indication: BLOOD PRESSURE
     Dosage: 1 DF (1 TABLET BY EVERY DAY)
     Route: 048
     Dates: start: 20130426
  9. XANAX [Concomitant]
     Indication: ANXIETY
     Dosage: 1 DF, TID
     Route: 048
     Dates: start: 20130422
  10. OXYGEN [Concomitant]
     Dosage: UNK
     Dates: start: 20130116
  11. FLONASE [Concomitant]
     Indication: RHINITIS ALLERGIC
     Dosage: 50 UG, BID (1 SPRAY EVERY BED TIME IN EACH NOSTRIL AND TWICE A DAY AS NEEDED)
     Dates: start: 20121030
  12. PRAVACHOL [Concomitant]
     Indication: CARDIAC DISORDER
     Dosage: 1 DF, (1 TABLET EVERY DAY)
     Route: 048
     Dates: start: 20121023
  13. SYSTANE [Concomitant]
     Dosage: UNK UKN, (INSTILL 1 DROP BY OPTHALMIC ROUTE 4 TIMES EVERY DAY EACH EYE, DOSE: 3-4 %)
     Route: 047
     Dates: start: 20121023
  14. SPIRIVA [Concomitant]
     Indication: CHRONIC OBSTRUCTIVE PULMONARY DISEASE
     Dosage: 1 DF, (EVERY DAY)
     Dates: start: 20121023
  15. DULCOLAX [Concomitant]
     Dosage: 1 DF, (1 CAPSULE EVERY DAY AS NEEDED)
     Route: 048
     Dates: start: 20121023
  16. FERROUS SULFATE [Concomitant]
     Indication: ANAEMIA
     Dosage: 1 DF, (1 TABLET 325 MG (65 MG IRON) EVERY DAY)
     Route: 048
     Dates: start: 20121001

REACTIONS (1)
  - Lung cancer metastatic [Fatal]
